FAERS Safety Report 9250351 (Version 1)
Quarter: 2013Q1

REPORT INFORMATION
  Report Type: Spontaneous
  Country: US (occurrence: None)
  Receive Date: 20130305
  Receipt Date: 20130305
  Transmission Date: 20140127
  Serious: Yes (Other)
  Sender: FDA-Public Use
  Company Number: 163-21880-12040674

PATIENT
  Age: 85 Year
  Sex: Female

DRUGS (9)
  1. REVLIMID [Suspect]
     Indication: PLASMA CELL MYELOMA
     Dosage: 1 IN 3 DAYS
     Route: 048
     Dates: start: 20081203
  2. LIPITOR (ATOVASTATIN) [Concomitant]
  3. BENICAR (OLMESARTAN MEDOXOMIL) [Concomitant]
  4. CLARITIN (LORATADINE) [Concomitant]
  5. IMODIUM A-D (LOPERAMIDE HYDROCHLORIDE) [Concomitant]
  6. HCTZ/TRIAMTERENE (DYAZIDE) [Concomitant]
  7. ARANESP (DARBEPOETIN ALFA) [Concomitant]
  8. KLOR-CON (POTASSIUM CHLORIDE) [Concomitant]
  9. HYDROCODONE/APAP (VICODIN) [Concomitant]

REACTIONS (4)
  - Red blood cell count decreased [None]
  - Local swelling [None]
  - Fatigue [None]
  - White blood cell count decreased [None]
